FAERS Safety Report 17720060 (Version 1)
Quarter: 2020Q2

REPORT INFORMATION
  Report Type: Spontaneous
  Country: GB (occurrence: GB)
  Receive Date: 20200428
  Receipt Date: 20200428
  Transmission Date: 20200714
  Serious: Yes (Life-Threatening, Other)
  Sender: FDA-Public Use
  Company Number: GB-MYLANLABS-2020M1042322

PATIENT
  Age: 8 Year
  Sex: Male
  Weight: 17 kg

DRUGS (16)
  1. CYCLOPHOSPHAMIDE. [Concomitant]
     Active Substance: CYCLOPHOSPHAMIDE
     Indication: NEUROBLASTOMA
     Dosage: UNK
  2. DOXORUBICIN [Concomitant]
     Active Substance: DOXORUBICIN
     Indication: METASTASES TO BONE
     Dosage: UNK
  3. ETOPOSIDE. [Concomitant]
     Active Substance: ETOPOSIDE
     Indication: NEUROBLASTOMA
     Dosage: 200 MILLIGRAM/SQ. METER
  4. VINCRISTINE [Concomitant]
     Active Substance: VINCRISTINE
     Indication: NEUROBLASTOMA
     Dosage: 0.02 MILLIGRAM/KILOGRAM
  5. CISPLATIN. [Concomitant]
     Active Substance: CISPLATIN
     Indication: NEUROBLASTOMA
     Dosage: 50 MILLIGRAM/SQ. METER
  6. CISPLATIN. [Concomitant]
     Active Substance: CISPLATIN
     Indication: METASTASES TO BONE
     Dosage: UNK
  7. ACICLOVIR [Suspect]
     Active Substance: ACYCLOVIR
     Indication: VARICELLA ZOSTER VIRUS INFECTION
     Dosage: 500 MILLIGRAM/SQ. METER
     Route: 042
  8. FOSCARNET SODIUM. [Suspect]
     Active Substance: FOSCARNET SODIUM
     Indication: VARICELLA ZOSTER VIRUS INFECTION
     Dosage: UNK
  9. ETOPOSIDE. [Concomitant]
     Active Substance: ETOPOSIDE
     Indication: METASTASES TO BONE
     Dosage: UNK
  10. DOXORUBICIN [Concomitant]
     Active Substance: DOXORUBICIN
     Indication: NEUROBLASTOMA
     Dosage: UNK
  11. CYCLOPHOSPHAMIDE. [Concomitant]
     Active Substance: CYCLOPHOSPHAMIDE
     Dosage: 70 MILLIGRAM/KILOGRAM
  12. DOXORUBICIN [Concomitant]
     Active Substance: DOXORUBICIN
     Dosage: 25 MILLIGRAM/SQ. METER
  13. CYCLOPHOSPHAMIDE. [Concomitant]
     Active Substance: CYCLOPHOSPHAMIDE
     Indication: METASTASES TO BONE
     Dosage: UNK
  14. ACICLOVIR [Suspect]
     Active Substance: ACYCLOVIR
     Dosage: UNK
     Route: 042
  15. VINCRISTINE [Concomitant]
     Active Substance: VINCRISTINE
     Indication: METASTASES TO BONE
     Dosage: UNK
  16. CIDOFOVIR. [Concomitant]
     Active Substance: CIDOFOVIR
     Indication: VARICELLA ZOSTER VIRUS INFECTION
     Dosage: UNK

REACTIONS (2)
  - Drug ineffective for unapproved indication [Unknown]
  - Blood creatine increased [Unknown]
